FAERS Safety Report 8871484 (Version 2)
Quarter: 2013Q2

REPORT INFORMATION
  Report Type: Spontaneous
  Country: US (occurrence: US)
  Receive Date: 20121023
  Receipt Date: 20130401
  Transmission Date: 20140414
  Serious: Yes (Death, Hospitalization)
  Sender: FDA-Public Use
  Company Number: US-ASTELLAS-2012US008114

PATIENT
  Age: 76 Year
  Sex: Male

DRUGS (2)
  1. PROGRAF [Suspect]
     Indication: HEART TRANSPLANT
     Dosage: 1.5 MG, UID/QD
     Route: 048
     Dates: start: 20080604, end: 20130218
  2. MYCOPHENOLATE [Concomitant]
     Indication: PRODUCT USED FOR UNKNOWN INDICATION
     Dosage: UNK
     Route: 065

REACTIONS (3)
  - Drug administration error [Unknown]
  - Renal failure [Fatal]
  - Tachycardia [Recovered/Resolved]
